FAERS Safety Report 7676114-X (Version None)
Quarter: 2011Q3

REPORT INFORMATION
  Report Type: 
  Country: None (occurrence: None)
  Receive Date: 20110805
  Receipt Date: 20110721
  Transmission Date: 20111222
  Serious: Yes (Hospitalization, Other)
  Sender: FDA-Public Use
  Company Number: 2011MA009231

PATIENT
  Age: 88 Year
  Sex: Female

DRUGS (7)
  1. IODINE POVACRYLEX [Suspect]
     Indication: CARDIAC PACEMAKER INSERTION
     Dosage: 0.7 PT. TOP
     Route: 061
  2. ISOPROPYL ALCOHOL [Suspect]
     Indication: CARDIAC PACEMAKER INSERTION
     Dosage: 74 PT; TOP
     Route: 061
  3. CEFAZOLIN [Suspect]
     Indication: CARDIAC PACEMAKER INSERTION
     Dosage: 1 G; IV
     Route: 042
  4. LIDOCAINE [Suspect]
     Indication: CARDIAC PACEMAKER INSERTION
     Dosage: 1 PT ; SC
     Route: 058
  5. DILTIAZEM [Suspect]
     Indication: CARDIAC PACEMAKER INSERTION
  6. MIDAZOLAM HCL [Suspect]
     Indication: CARDIAC PACEMAKER INSERTION
     Dosage: 1 MG; IV
     Route: 042
  7. BACITRACIN ZINC [Suspect]
     Indication: INFECTION PROPHYLAXIS
     Dosage: IRRG

REACTIONS (3)
  - LOSS OF CONSCIOUSNESS [None]
  - ANAPHYLACTIC REACTION [None]
  - APNOEA [None]
